FAERS Safety Report 10248676 (Version 1)
Quarter: 2014Q2

REPORT INFORMATION
  Report Type: Spontaneous
  Country: US (occurrence: US)
  Receive Date: 20140620
  Receipt Date: 20140620
  Transmission Date: 20141212
  Serious: No
  Sender: FDA-Public Use
  Company Number: US-ASTRAZENECA-2014SE40930

PATIENT
  Age: 64 Year
  Sex: Female
  Weight: 72.1 kg

DRUGS (7)
  1. TOPROL XL [Suspect]
     Indication: HYPERTENSION
     Route: 048
     Dates: start: 1994, end: 2013
  2. TOPROL XL [Suspect]
     Indication: HYPERTENSION
     Route: 048
     Dates: start: 2013
  3. CRESTOR [Suspect]
     Indication: BLOOD CHOLESTEROL ABNORMAL
     Route: 048
  4. CRESTOR [Suspect]
     Indication: BLOOD CHOLESTEROL ABNORMAL
     Route: 048
  5. MORPHINE [Suspect]
     Dosage: DAILY
     Route: 048
  6. LEVOTHYROXINE [Concomitant]
     Indication: THYROID DISORDER
     Dosage: 50 MCG DAILY
     Route: 048
     Dates: start: 2004
  7. VALSARTAN HCTZ [Concomitant]
     Indication: BLOOD PRESSURE ABNORMAL
     Dosage: 160 OVER 12.5 DAILY
     Route: 048

REACTIONS (9)
  - Adverse event [Unknown]
  - Blood bilirubin abnormal [Unknown]
  - Cholelithiasis [Unknown]
  - Blood cholesterol abnormal [Unknown]
  - Body height decreased [Unknown]
  - Abdominal pain upper [Unknown]
  - Arthralgia [Unknown]
  - Abdominal discomfort [Unknown]
  - Drug hypersensitivity [Unknown]
